FAERS Safety Report 20497211 (Version 1)
Quarter: 2022Q1

REPORT INFORMATION
  Report Type: Spontaneous
  Country: GB (occurrence: GB)
  Receive Date: 20220221
  Receipt Date: 20220221
  Transmission Date: 20220423
  Serious: Yes (Hospitalization, Other)
  Sender: FDA-Public Use
  Company Number: GB-sptaiwan-2022SUN000554

PATIENT

DRUGS (8)
  1. LURASIDONE HYDROCHLORIDE [Suspect]
     Active Substance: LURASIDONE HYDROCHLORIDE
     Dosage: UNK
     Route: 048
  2. LITHIUM [Concomitant]
     Active Substance: LITHIUM
     Route: 065
  3. OMEPRAZOLE [Concomitant]
     Active Substance: OMEPRAZOLE
     Route: 065
  4. SIMVASTATIN [Concomitant]
     Active Substance: SIMVASTATIN
     Route: 065
  5. ASPIRIN [Concomitant]
     Active Substance: ASPIRIN
     Route: 065
  6. SERTRALINE [Concomitant]
     Active Substance: SERTRALINE HYDROCHLORIDE
     Route: 065
  7. LACTULOSE [Concomitant]
     Active Substance: LACTULOSE
     Route: 065
  8. BISOPROLOL [Concomitant]
     Active Substance: BISOPROLOL
     Route: 065

REACTIONS (20)
  - Starvation ketoacidosis [Recovering/Resolving]
  - Metabolic acidosis [Recovering/Resolving]
  - Unresponsive to stimuli [Recovering/Resolving]
  - Cholecystitis acute [Unknown]
  - Diabetes mellitus [Unknown]
  - Pancreatitis [Unknown]
  - Hypokalaemia [Recovering/Resolving]
  - Electrolyte imbalance [Recovering/Resolving]
  - Confusional state [Recovered/Resolved]
  - Hypophosphataemia [Recovering/Resolving]
  - Sinus tachycardia [Unknown]
  - Malnutrition [Unknown]
  - Hypertonia [Unknown]
  - Leukocytosis [Unknown]
  - Transaminases increased [Unknown]
  - Hypercalcaemia [Unknown]
  - Ketonuria [Unknown]
  - Pyrexia [Recovered/Resolved]
  - Weight decreased [Unknown]
  - Tremor [Unknown]
